FAERS Safety Report 8253170-1 (Version None)
Quarter: 2012Q2

REPORT INFORMATION
  Report Type: 
  Country: None (occurrence: None)
  Receive Date: 20120402
  Receipt Date: 20120306
  Transmission Date: 20120825
  Serious: No
  Sender: FDA-Public Use
  Company Number: US-AMGEN-USASP2012014691

PATIENT
  Age: 49 Year
  Sex: Female

DRUGS (3)
  1. PASPAT                             /00021402/ [Concomitant]
     Dosage: UNK
  2. ENBREL [Suspect]
     Indication: PRODUCT USED FOR UNKNOWN INDICATION
     Dosage: 50 MG, QWK
     Dates: start: 20111001
  3. AMINO ACIDS [Concomitant]
     Dosage: UNK, 15 AMINO ACIDS.

REACTIONS (10)
  - ASTHMA [None]
  - NASOPHARYNGITIS [None]
  - BLEPHAROSPASM [None]
  - ANXIETY [None]
  - BLOOD CORTISOL INCREASED [None]
  - CHEST PAIN [None]
  - OEDEMA [None]
  - DIARRHOEA [None]
  - DYSPNOEA [None]
  - JOINT SWELLING [None]
